FAERS Safety Report 25754792 (Version 1)
Quarter: 2025Q3

REPORT INFORMATION
  Report Type: Spontaneous
  Country: US (occurrence: US)
  Receive Date: 20250903
  Receipt Date: 20250903
  Transmission Date: 20251021
  Serious: No
  Sender: Kenvue
  Company Number: US-KENVUE-20250802036

PATIENT
  Sex: Female

DRUGS (1)
  1. WOMENS ROGAINE UNSCENTED [Suspect]
     Active Substance: MINOXIDIL
     Indication: Alopecia
     Dosage: UNK, ONCE A DAY
     Route: 061
     Dates: start: 20250704, end: 2025

REACTIONS (2)
  - Application site pruritus [Recovering/Resolving]
  - Application site acne [Recovering/Resolving]

NARRATIVE: CASE EVENT DATE: 20250704
